FAERS Safety Report 6088059-X (Version None)
Quarter: 2009Q1

REPORT INFORMATION
  Report Type: 
  Country: None (occurrence: None)
  Receive Date: 20090218
  Receipt Date: 20090204
  Transmission Date: 20090719
  Serious: Yes (Hospitalization)
  Sender: FDA-Public Use
  Company Number: 2009S1002002

PATIENT
  Age: 68 Year
  Sex: Female

DRUGS (16)
  1. DOXYCYCLINE [Suspect]
     Indication: EAR PAIN
     Dosage: 100 MG;
     Dates: start: 20081027, end: 20081028
  2. ADCAL-D3 [Concomitant]
  3. BETAHISTINE [Concomitant]
  4. BISOPROLOL [Concomitant]
  5. FOLIC ACID [Concomitant]
  6. FUROSEMIDE [Concomitant]
  7. GLICLAZIDE [Concomitant]
  8. NITROGLYCERIN [Concomitant]
  9. LANSOPRAZOLE [Concomitant]
  10. LOSARTAN [Concomitant]
  11. MEBEVERINE HYDROCHLORIDE [Concomitant]
  12. METFORMIN HCL [Concomitant]
  13. METHOTREXATE [Concomitant]
  14. PREDNISOLONE [Concomitant]
  15. STEMETIL [Concomitant]
  16. TRAMADOL HCL [Concomitant]

REACTIONS (2)
  - ANGINA PECTORIS [None]
  - DYSPEPSIA [None]
